FAERS Safety Report 12728151 (Version 1)
Quarter: 2016Q3

REPORT INFORMATION
  Report Type: Spontaneous
  Country: US (occurrence: US)
  Receive Date: 20160909
  Receipt Date: 20160909
  Transmission Date: 20161109
  Serious: No
  Sender: FDA-Public Use
  Company Number: US-BECTON DICKINSON-2015BDN00003

PATIENT
  Sex: Male

DRUGS (2)
  1. CHLORAPREP [Suspect]
     Active Substance: CHLORHEXIDINE GLUCONATE\ISOPROPYL ALCOHOL
     Indication: STERILISATION
     Dosage: EVERY OTHER WEEK
  2. UNSPECIFIED CHEMOTHERAPY [Concomitant]

REACTIONS (3)
  - Rash [Recovered/Resolved]
  - Dermatitis allergic [Recovered/Resolved]
  - Swelling [Recovered/Resolved]
